FAERS Safety Report 9207257 (Version 1)
Quarter: 2013Q2

REPORT INFORMATION
  Report Type: Spontaneous
  Country: US (occurrence: None)
  Receive Date: 20130402
  Receipt Date: 20130402
  Transmission Date: 20140414
  Serious: Yes (Other)
  Sender: FDA-Public Use
  Company Number: None

PATIENT
  Age: 59 Year
  Sex: Female

DRUGS (2)
  1. ENBREL 50MG [Suspect]
     Indication: MYALGIA
     Route: 058
     Dates: start: 20121024, end: 20130401
  2. ENBREL 50MG [Suspect]
     Indication: MYOSITIS
     Route: 058
     Dates: start: 20121024, end: 20130401

REACTIONS (2)
  - Lung carcinoma cell type unspecified stage IV [None]
  - Adrenal gland cancer [None]
